FAERS Safety Report 25467194 (Version 3)
Quarter: 2025Q3

REPORT INFORMATION
  Report Type: Spontaneous
  Country: EU (occurrence: EU)
  Receive Date: 20250623
  Receipt Date: 20250730
  Transmission Date: 20251020
  Serious: Yes (Hospitalization)
  Sender: BIOVITRUM
  Company Number: EU-BIOVITRUM-2025-IT-008670

PATIENT
  Sex: Female

DRUGS (7)
  1. AVATROMBOPAG [Suspect]
     Active Substance: AVATROMBOPAG
     Indication: Immune thrombocytopenia
     Dates: start: 20230701
  2. AVATROMBOPAG [Suspect]
     Active Substance: AVATROMBOPAG
     Dates: start: 20230830
  3. AVATROMBOPAG [Suspect]
     Active Substance: AVATROMBOPAG
     Dates: start: 202310
  4. AVATROMBOPAG [Suspect]
     Active Substance: AVATROMBOPAG
     Dates: start: 202501
  5. AVATROMBOPAG [Suspect]
     Active Substance: AVATROMBOPAG
     Dates: start: 20250212
  6. AVATROMBOPAG [Suspect]
     Active Substance: AVATROMBOPAG
     Dates: start: 20250331
  7. AVATROMBOPAG [Suspect]
     Active Substance: AVATROMBOPAG
     Dates: start: 20250305

REACTIONS (2)
  - Restenosis [Unknown]
  - Maternal exposure during pregnancy [Unknown]
